FAERS Safety Report 19170222 (Version 3)
Quarter: 2021Q2

REPORT INFORMATION
  Report Type: Spontaneous
  Country: US (occurrence: US)
  Receive Date: 20210422
  Receipt Date: 20210622
  Transmission Date: 20210717
  Serious: Yes (Hospitalization, Other)
  Sender: FDA-Public Use
  Company Number: US-PFIZER INC-2021430316

PATIENT
  Age: 63 Year
  Sex: Female

DRUGS (1)
  1. IBRANCE [Suspect]
     Active Substance: PALBOCICLIB
     Dosage: 100 MG
     Dates: start: 20190609

REACTIONS (8)
  - Device related infection [Unknown]
  - Nausea [Unknown]
  - Sepsis [Unknown]
  - Constipation [Unknown]
  - Diarrhoea [Unknown]
  - Renal failure [Unknown]
  - Fatigue [Unknown]
  - Pyrexia [Unknown]
